FAERS Safety Report 16263782 (Version 1)
Quarter: 2019Q2

REPORT INFORMATION
  Report Type: Spontaneous
  Country: CN (occurrence: CN)
  Receive Date: 20190502
  Receipt Date: 20190502
  Transmission Date: 20190711
  Serious: Yes (Life-Threatening, Hospitalization, Other)
  Sender: FDA-Public Use
  Company Number: CN-ACCORD-125673

PATIENT
  Age: 17 Year
  Sex: Male

DRUGS (3)
  1. METHOTREXATE. [Suspect]
     Active Substance: METHOTREXATE
     Indication: T-CELL LYMPHOMA STAGE IV
     Dosage: CONTINUOUS INTRAVENOUS INFUSION FOR 4 HOURS D1, HIGH DOSE, 1.0 G/M^2
     Route: 042
  2. DEXAMETHASONE. [Concomitant]
     Active Substance: DEXAMETHASONE
     Indication: T-CELL LYMPHOMA STAGE IV
     Dosage: D1-D4
  3. ASPARAGINASE [Concomitant]
     Active Substance: ASPARAGINASE
     Indication: T-CELL LYMPHOMA STAGE IV
     Dosage: EGASPARAGINASE, D4

REACTIONS (1)
  - Reversible cerebral vasoconstriction syndrome [Recovered/Resolved]
